FAERS Safety Report 17730547 (Version 1)
Quarter: 2020Q2

REPORT INFORMATION
  Report Type: Spontaneous
  Country: DE (occurrence: DE)
  Receive Date: 20200430
  Receipt Date: 20200430
  Transmission Date: 20200714
  Serious: Yes (Hospitalization)
  Sender: FDA-Public Use
  Company Number: DE-MYLANLABS-2020M1042395

PATIENT
  Sex: Male
  Weight: 54 kg

DRUGS (3)
  1. PACLITAXEL. [Concomitant]
     Active Substance: PACLITAXEL
     Indication: NON-SMALL CELL LUNG CANCER
     Dosage: 230 MILLIGRAM
     Route: 042
     Dates: start: 20200205
  2. CARBOPLATIN. [Concomitant]
     Active Substance: CARBOPLATIN
     Indication: NON-SMALL CELL LUNG CANCER
     Dosage: 455 MILLIGRAM
     Dates: start: 20200205
  3. PEGFILGRASTIM [Suspect]
     Active Substance: PEGFILGRASTIM
     Indication: PRODUCT USED FOR UNKNOWN INDICATION
     Dosage: 6 MILLIGRAM (STRENGTH: 6 MG)
     Route: 058
     Dates: start: 20200305

REACTIONS (1)
  - Circulatory collapse [Unknown]

NARRATIVE: CASE EVENT DATE: 20200325
